FAERS Safety Report 5743452-7 (Version None)
Quarter: 2008Q2

REPORT INFORMATION
  Report Type: 
  Country: None (occurrence: None)
  Receive Date: 20080519
  Receipt Date: 20080519
  Transmission Date: 20081010
  Serious: No
  Sender: FDA-Public Use
  Company Number: None

PATIENT
  Age: 58 Year
  Sex: Female

DRUGS (1)
  1. FENTANYL TRANSDERM PATCH 100MCG [Suspect]
     Indication: PAIN
     Dosage: APPLY ONE PATCH EVERY DAYS

REACTIONS (2)
  - DEVICE FAILURE [None]
  - PHARMACEUTICAL PRODUCT COMPLAINT [None]
